FAERS Safety Report 9190566 (Version 1)
Quarter: 2013Q1

REPORT INFORMATION
  Report Type: Spontaneous
  Country: IN (occurrence: None)
  Receive Date: 20130322
  Receipt Date: 20130322
  Transmission Date: 20140127
  Serious: Yes (Other)
  Sender: FDA-Public Use
  Company Number: 2013P1003295

PATIENT
  Sex: 0

DRUGS (1)
  1. ISONIAZID [Suspect]

REACTIONS (1)
  - Stevens-Johnson syndrome [None]
